FAERS Safety Report 5328711-4 (Version None)
Quarter: 2007Q2

REPORT INFORMATION
  Report Type: 
  Country: None (occurrence: None)
  Receive Date: 20070518
  Receipt Date: 20070507
  Transmission Date: 20071010
  Serious: Yes (Death, Hospitalization)
  Sender: FDA-Public Use
  Company Number: US-ROCHE-492371

PATIENT
  Age: 82 Year
  Sex: Male
  Weight: 68.6 kg

DRUGS (3)
  1. CAPECITABINE [Suspect]
     Dosage: GIVEN ON DAYS 1-8 EVERY TWO WEEKS.
     Route: 048
     Dates: start: 20070316, end: 20070331
  2. OXALIPLATIN [Suspect]
     Dosage: GIVEN ON DAY 1 EVERY TWO WEEKS.
     Route: 042
     Dates: start: 20070316, end: 20070329
  3. BEVACIZUMAB [Suspect]
     Dosage: GIVEN ON DAYS 1 EVERY TWO WEEKS.
     Route: 042
     Dates: start: 20070316, end: 20070329

REACTIONS (14)
  - ATRIAL FIBRILLATION [None]
  - ATRIAL FLUTTER [None]
  - DEHYDRATION [None]
  - DIARRHOEA [None]
  - FLATULENCE [None]
  - HYPOTENSION [None]
  - ILEUS [None]
  - ISCHAEMIC STROKE [None]
  - KLEBSIELLA SEPSIS [None]
  - LARGE INTESTINAL OBSTRUCTION [None]
  - MUCOSAL INFLAMMATION [None]
  - MULTI-ORGAN FAILURE [None]
  - RENAL FAILURE [None]
  - SMALL INTESTINAL OBSTRUCTION [None]
